FAERS Safety Report 4608136-7 (Version None)
Quarter: 2005Q1

REPORT INFORMATION
  Report Type: 
  Country: None (occurrence: None)
  Receive Date: 20050314
  Receipt Date: 20041202
  Transmission Date: 20050727
  Serious: Yes (Hospitalization, Disabling, Other)
  Sender: FDA-Public Use
  Company Number: US-MERCK-0412USA00646

PATIENT
  Age: 31 Year
  Sex: Female
  Weight: 77 kg

DRUGS (9)
  1. VIOXX [Suspect]
     Indication: ARTHRITIS
     Route: 048
     Dates: start: 20020201, end: 20021101
  2. HYZAAR [Concomitant]
     Route: 048
  3. GLUCOPHAGE [Concomitant]
     Route: 065
  4. GLIPIZIDE [Concomitant]
     Route: 065
  5. COZAAR [Concomitant]
     Route: 065
  6. ASPIRIN [Concomitant]
     Route: 065
  7. FERROUS SULFATE [Concomitant]
     Route: 065
  8. CELEXA [Concomitant]
     Route: 065
  9. LIPITOR [Concomitant]
     Route: 065

REACTIONS (8)
  - ABSCESS [None]
  - ANXIETY [None]
  - CEREBRAL INFARCTION [None]
  - CEREBROVASCULAR ACCIDENT [None]
  - DEPRESSION [None]
  - DIABETES MELLITUS INADEQUATE CONTROL [None]
  - HYPERLIPIDAEMIA [None]
  - NASAL CONGESTION [None]
